FAERS Safety Report 9444887 (Version 2)
Quarter: 2013Q4

REPORT INFORMATION
  Report Type: Spontaneous
  Country: US (occurrence: None)
  Receive Date: 20130805
  Receipt Date: 20131101
  Transmission Date: 20140711
  Serious: Yes (Other)
  Sender: FDA-Public Use
  Company Number: VAL_02667_2013

PATIENT
  Sex: Female

DRUGS (5)
  1. METOPROLOL [Suspect]
     Indication: PRODUCT USED FOR UNKNOWN INDICATION
     Dosage: DF
  2. DIOVAN (NOT SPECIFIED) [Suspect]
     Indication: PRODUCT USED FOR UNKNOWN INDICATION
  3. VERAPAMIL [Concomitant]
  4. LIVALO [Concomitant]
  5. AMLODIPINE [Suspect]

REACTIONS (5)
  - Fatigue [None]
  - Lethargy [None]
  - Asthenia [None]
  - Myalgia [None]
  - Alopecia [None]
